FAERS Safety Report 15804735 (Version 2)
Quarter: 2019Q1

REPORT INFORMATION
  Report Type: Spontaneous
  Country: US (occurrence: US)
  Receive Date: 20190109
  Receipt Date: 20190212
  Transmission Date: 20190417
  Serious: Yes (Other)
  Sender: FDA-Public Use
  Company Number: PHEH2019US000880

PATIENT
  Sex: Female

DRUGS (1)
  1. BUPROPION HCI TABLETS EXTENDED-RELEASE [Suspect]
     Active Substance: BUPROPION HYDROCHLORIDE
     Indication: PRODUCT USED FOR UNKNOWN INDICATION
     Dosage: UNK
     Route: 065
     Dates: end: 20181228

REACTIONS (12)
  - Mental impairment [Unknown]
  - Oropharyngeal pain [Unknown]
  - Disturbance in attention [Unknown]
  - Insomnia [Unknown]
  - Tachyphrenia [Unknown]
  - Feeling abnormal [Unknown]
  - Mania [Unknown]
  - Anxiety [Unknown]
  - Panic attack [Unknown]
  - Vomiting [Unknown]
  - Suicidal ideation [Recovered/Resolved]
  - Depression [Unknown]
